FAERS Safety Report 6675364-9 (Version None)
Quarter: 2010Q2

REPORT INFORMATION
  Report Type: 
  Country: None (occurrence: None)
  Receive Date: 20100409
  Receipt Date: 20100301
  Transmission Date: 20101027
  Serious: No
  Sender: FDA-Public Use
  Company Number: A0847373A

PATIENT
  Sex: Female

DRUGS (7)
  1. TYKERB [Suspect]
     Indication: BREAST CANCER
     Dosage: 250MG FIVE TIMES PER DAY
     Route: 048
     Dates: start: 20100112
  2. GEMZAR [Suspect]
  3. CANCER CHEMOTHERAPY [Suspect]
  4. ULTRASE MT20 [Concomitant]
  5. PROMETHAZINE [Concomitant]
  6. MILK OF MAGNESIA TAB [Concomitant]
  7. IXEMPRA KIT [Concomitant]

REACTIONS (3)
  - CHEST PAIN [None]
  - ERYTHEMA [None]
  - RASH [None]
